FAERS Safety Report 7138917-X (Version None)
Quarter: 2010Q4

REPORT INFORMATION
  Report Type: 
  Country: None (occurrence: None)
  Receive Date: 20101206
  Receipt Date: 20101123
  Transmission Date: 20110411
  Serious: Yes (Hospitalization)
  Sender: FDA-Public Use
  Company Number: A0774060A

PATIENT
  Age: 64 Year
  Sex: Female
  Weight: 113.6 kg

DRUGS (7)
  1. AVANDIA [Suspect]
     Dosage: 4MG TWICE PER DAY
     Route: 048
     Dates: start: 20001106, end: 20030630
  2. GLUCOPHAGE [Concomitant]
  3. GLYBURIDE [Concomitant]
  4. ATENOLOL [Concomitant]
  5. AZOPT [Concomitant]
  6. ZESTRIL [Concomitant]
  7. ZOCOR [Concomitant]

REACTIONS (7)
  - ANXIETY [None]
  - CARDIAC FAILURE CONGESTIVE [None]
  - CARDIOMYOPATHY [None]
  - CONDITION AGGRAVATED [None]
  - CORONARY ANGIOPLASTY [None]
  - DEPRESSION [None]
  - MYOCARDIAL INFARCTION [None]
